FAERS Safety Report 6010191-7 (Version None)
Quarter: 2008Q4

REPORT INFORMATION
  Report Type: 
  Country: None (occurrence: None)
  Receive Date: 20081218
  Receipt Date: 20081215
  Transmission Date: 20090506
  Serious: Yes (Hospitalization, Other)
  Sender: FDA-Public Use
  Company Number: US-BRISTOL-MYERS SQUIBB COMPANY-14414585

PATIENT
  Age: 42 Year
  Sex: Male
  Weight: 95 kg

DRUGS (9)
  1. CYCLOPHOSPHAMIDE [Suspect]
     Indication: DIFFUSE LARGE B-CELL LYMPHOMA
     Dosage: THERAPY STARTED ON 24-JUL-2008 TO ONGOING/CYCLE 6 OF R-CHOP ON 13-NOV-2008
     Route: 042
     Dates: start: 20081016, end: 20081016
  2. VINCRISTINE SULFATE [Suspect]
     Indication: DIFFUSE LARGE B-CELL LYMPHOMA
     Dosage: THERAPY STARTED ON 24-JUL-2008 TO ONGOING/CYCLE 6 OF R-CHOP ON 13-NOV-2008
     Route: 042
     Dates: start: 20081016, end: 20081016
  3. DOXORUBICIN HCL [Suspect]
     Indication: DIFFUSE LARGE B-CELL LYMPHOMA
     Dosage: THERAPY STARTED ON 24-JUL-2008 TO ONGOING/CYCLE 6 OF R-CHOP ON 13-NOV-2008
     Route: 042
     Dates: start: 20081016, end: 20081016
  4. ENZASTAURIN [Suspect]
     Indication: DIFFUSE LARGE B-CELL LYMPHOMA
     Dosage: LOADINGDOSE:1125MG ON DAY 1(24JUL08);500MG DAILY FROM 25JUL08,LASTDOSE-16OCT08-ONGOING/6CYC-13NOV08
     Route: 048
     Dates: start: 20081016
  5. PREDNISONE TAB [Suspect]
     Indication: DIFFUSE LARGE B-CELL LYMPHOMA
     Dosage: DAY 1 THROUGH 5, FROM 24-JUL-2008 TO ONGOING
     Route: 048
     Dates: start: 20081020
  6. RITUXIMAB [Suspect]
     Indication: DIFFUSE LARGE B-CELL LYMPHOMA
     Dosage: THERAPY STARTED ON 24-JUL-2008 TO ONGOING/CYCLE 6 ON 13-NOV-2008
     Route: 042
     Dates: start: 20081016, end: 20081016
  7. ALLOPURINOL [Concomitant]
  8. POTASSIUM CHLORIDE [Concomitant]
  9. TYLENOL COLD SEVERE CONGESTION [Concomitant]
     Dates: start: 20081102

REACTIONS (3)
  - ABDOMINAL PAIN [None]
  - DIARRHOEA [None]
  - WEIGHT DECREASED [None]
